FAERS Safety Report 17362562 (Version 1)
Quarter: 2020Q1

REPORT INFORMATION
  Report Type: Spontaneous
  Country: US (occurrence: US)
  Receive Date: 20200203
  Receipt Date: 20200203
  Transmission Date: 20200409
  Serious: Yes (Other)
  Sender: FDA-Public Use
  Company Number: US-BAUSCH-BL-2020-002134

PATIENT
  Age: 60 Year
  Sex: Male

DRUGS (2)
  1. DOXYCYCLINE. [Concomitant]
     Active Substance: DOXYCYCLINE
     Indication: TULARAEMIA
  2. GENTAMICIN. [Suspect]
     Active Substance: GENTAMICIN
     Indication: TULARAEMIA
     Route: 042

REACTIONS (1)
  - Renal impairment [Unknown]
